FAERS Safety Report 7712821-8 (Version None)
Quarter: 2011Q3

REPORT INFORMATION
  Report Type: 
  Country: None (occurrence: None)
  Receive Date: 20110826
  Receipt Date: 20110822
  Transmission Date: 20111222
  Serious: Yes (Death, Hospitalization)
  Sender: FDA-Public Use
  Company Number: PHHY2011CR75300

PATIENT
  Age: 61 Year
  Sex: Male

DRUGS (6)
  1. AMLODIPINE [Concomitant]
  2. NPH INSULIN [Concomitant]
     Dosage: 30 U IN AM AND 10 U SC IN PM
     Route: 058
  3. ATENOLOL [Concomitant]
  4. FUROSEMIDE [Concomitant]
     Dosage: UNK
  5. RASILEZ [Suspect]
     Indication: HYPERTENSION
     Dosage: 300 MG, QD
     Route: 048
  6. PLAVIX [Concomitant]

REACTIONS (4)
  - DEATH [None]
  - GANGRENE [None]
  - PNEUMONIA [None]
  - FLUID RETENTION [None]
